FAERS Safety Report 9234465 (Version 1)
Quarter: 2013Q2

REPORT INFORMATION
  Report Type: Spontaneous
  Country: US (occurrence: US)
  Receive Date: 20130416
  Receipt Date: 20130416
  Transmission Date: 20140414
  Serious: No
  Sender: FDA-Public Use
  Company Number: US-BANPHARM-20120168

PATIENT
  Age: 70 Year
  Sex: Female
  Weight: 88.89 kg

DRUGS (10)
  1. ALEVE LIQUID GELS 220 MG [Suspect]
     Indication: BACK PAIN
     Dosage: 2 DF, QD,
     Route: 048
     Dates: start: 20120904, end: 20120912
  2. BAYER ASPIRIN REGIMEN ADULT LOW STRENGTH [Concomitant]
     Indication: ISCHAEMIC HEART DISEASE PROPHYLAXIS
  3. METFORMIN [Concomitant]
  4. METOPROLOL [Concomitant]
  5. ERGOCALCIFEROL [Concomitant]
  6. GABAPENTIN [Concomitant]
  7. WELCO [Concomitant]
  8. NOCTURNAL [Concomitant]
  9. HYDROXYCHLOROQUINE [Concomitant]
  10. ALPRAZOLAM [Concomitant]

REACTIONS (1)
  - Dizziness [Not Recovered/Not Resolved]
